FAERS Safety Report 4366876-1 (Version None)
Quarter: 2004Q2

REPORT INFORMATION
  Report Type: 
  Country: None (occurrence: None)
  Receive Date: 20040524
  Receipt Date: 20040513
  Transmission Date: 20050107
  Serious: Yes (Hospitalization)
  Sender: FDA-Public Use
  Company Number: 200403791

PATIENT
  Age: 11 Year
  Sex: Male
  Weight: 34.4734 kg

DRUGS (2)
  1. CHILDREN'S MOTRIN [Suspect]
     Indication: PYREXIA
     Dosage: 200MG Q8H, PO
     Route: 048
     Dates: start: 20040430, end: 20040502
  2. CLARINEX [Concomitant]

REACTIONS (8)
  - ABDOMINAL PAIN UPPER [None]
  - CRYING [None]
  - DECREASED APPETITE [None]
  - DIARRHOEA [None]
  - INFLAMMATION [None]
  - MUSCLE CRAMP [None]
  - NAUSEA [None]
  - WEIGHT DECREASED [None]
